FAERS Safety Report 8464821-0 (Version None)
Quarter: 2012Q2

REPORT INFORMATION
  Report Type: 
  Country: None (occurrence: None)
  Receive Date: 20120626
  Receipt Date: 20120619
  Transmission Date: 20120825
  Serious: Yes (Other)
  Sender: FDA-Public Use
  Company Number: BR-US-EMD SERONO, INC.-7136627

PATIENT
  Sex: Male

DRUGS (4)
  1. ACETAMINOPHEN [Concomitant]
     Indication: PRODUCT USED FOR UNKNOWN INDICATION
  2. REBIF [Suspect]
     Indication: RELAPSING-REMITTING MULTIPLE SCLEROSIS
  3. DIPIRONE (DIPYRONE) [Concomitant]
     Indication: PRODUCT USED FOR UNKNOWN INDICATION
  4. UNSPECIFIED MEDICATION [Concomitant]
     Indication: MIGRAINE

REACTIONS (3)
  - HEADACHE [None]
  - OPTIC NERVE CUPPING [None]
  - EYE PAIN [None]
